FAERS Safety Report 18559524 (Version 1)
Quarter: 2020Q4

REPORT INFORMATION
  Report Type: Spontaneous
  Country: US (occurrence: US)
  Receive Date: 20201130
  Receipt Date: 20201130
  Transmission Date: 20210114
  Serious: No
  Sender: FDA-Public Use
  Company Number: US-PFIZER INC-2020463205

PATIENT
  Age: 52 Year
  Sex: Female
  Weight: 58.06 kg

DRUGS (1)
  1. PREMARIN [Suspect]
     Active Substance: ESTROGENS, CONJUGATED
     Indication: MENOPAUSE
     Dosage: 0.5 G, 2X/WEEK (0.625 MG INSERT 0.5 G TWICE A WEEK)
     Route: 067
     Dates: start: 20201116, end: 20201119

REACTIONS (10)
  - Drug ineffective [Unknown]
  - Drug hypersensitivity [Not Recovered/Not Resolved]
  - Fungal infection [Unknown]
  - Condition aggravated [Unknown]
  - Vulvovaginal discomfort [Not Recovered/Not Resolved]
  - Vulvovaginal pain [Unknown]
  - Dermatitis atopic [Unknown]
  - Vulvovaginal swelling [Unknown]
  - Vulvovaginal pruritus [Not Recovered/Not Resolved]
  - Dysuria [Not Recovered/Not Resolved]

NARRATIVE: CASE EVENT DATE: 202011
